FAERS Safety Report 8370173-7 (Version None)
Quarter: 2012Q2

REPORT INFORMATION
  Report Type: 
  Country: None (occurrence: None)
  Receive Date: 20120518
  Receipt Date: 20120509
  Transmission Date: 20120825
  Serious: Yes (Hospitalization, Other)
  Sender: FDA-Public Use
  Company Number: US-JNJFOC-20120407996

PATIENT
  Sex: Female
  Weight: 83.92 kg

DRUGS (4)
  1. REMICADE [Suspect]
     Indication: RHEUMATOID ARTHRITIS
     Route: 042
     Dates: start: 20100101
  2. METHOTREXATE [Concomitant]
     Indication: RHEUMATOID ARTHRITIS
     Dosage: 7 TABLETS OF 2.5 MG
     Route: 048
  3. TRAMADOL HYDROCHLORIDE [Suspect]
     Indication: ARTHRALGIA
     Route: 048
     Dates: start: 20110101
  4. PLAQUENIL [Concomitant]
     Indication: RHEUMATOID ARTHRITIS
     Route: 048

REACTIONS (7)
  - ARTHRALGIA [None]
  - JOINT INJURY [None]
  - KNEE ARTHROPLASTY [None]
  - BACTERIAL TEST POSITIVE [None]
  - FALL [None]
  - MENISCUS LESION [None]
  - OVARIAN MASS [None]
